FAERS Safety Report 4808602-5 (Version None)
Quarter: 2005Q4

REPORT INFORMATION
  Report Type: 
  Country: None (occurrence: None)
  Receive Date: 20051025
  Receipt Date: 20051019
  Transmission Date: 20060501
  Serious: Yes (Other)
  Sender: FDA-Public Use
  Company Number: FR-GLAXOSMITHKLINE-B0398149A

PATIENT
  Age: 12 Year
  Sex: Female

DRUGS (2)
  1. SERETIDE [Suspect]
     Indication: ASTHMA
     Route: 055
     Dates: start: 20040101
  2. ANTIHISTAMINIC [Concomitant]
     Indication: HYPERSENSITIVITY
     Dates: start: 20040101

REACTIONS (4)
  - ASTHMA [None]
  - CONDITION AGGRAVATED [None]
  - HEMIPARESIS [None]
  - VASOSPASM [None]
